FAERS Safety Report 7968716-8 (Version None)
Quarter: 2011Q4

REPORT INFORMATION
  Report Type: 
  Country: None (occurrence: None)
  Receive Date: 20111209
  Receipt Date: 20111207
  Transmission Date: 20120403
  Serious: Yes (Death, Hospitalization, Other)
  Sender: FDA-Public Use
  Company Number: BR-ABBOTT-11P-020-0713728-00

PATIENT
  Sex: Male
  Weight: 65 kg

DRUGS (5)
  1. HUMIRA [Suspect]
     Route: 058
     Dates: end: 20110201
  2. HUMIRA [Suspect]
     Indication: PSORIASIS
     Dosage: 80MG LOADING DOSE
     Route: 058
     Dates: start: 20100601, end: 20100601
  3. UNKNOWN DRUG [Concomitant]
     Indication: HYPERTENSION
  4. HUMIRA [Suspect]
     Dosage: INDUCTION DOSE
     Route: 058
  5. POLARAMINE [Concomitant]
     Indication: HYPERSENSITIVITY
     Route: 048
     Dates: start: 20080101

REACTIONS (6)
  - HAEMATOLOGICAL MALIGNANCY [None]
  - GENERALISED ERYTHEMA [None]
  - PRURITUS [None]
  - OEDEMA PERIPHERAL [None]
  - SKIN CANCER [None]
  - FEELING ABNORMAL [None]
